FAERS Safety Report 20952899 (Version 1)
Quarter: 2022Q2

REPORT INFORMATION
  Report Type: Report from Study
  Country: GB (occurrence: GB)
  Receive Date: 20220613
  Receipt Date: 20220613
  Transmission Date: 20220720
  Serious: Yes (Other)
  Sender: FDA-Public Use
  Company Number: GB-GRUNENTHAL-2022-104353

PATIENT
  Age: 9 Decade
  Sex: Female

DRUGS (1)
  1. TRAMADOL HYDROCHLORIDE [Suspect]
     Active Substance: TRAMADOL HYDROCHLORIDE
     Indication: Arthralgia
     Dosage: UNK
     Route: 065

REACTIONS (4)
  - Fall [Unknown]
  - Drug dependence [Unknown]
  - Illness [Unknown]
  - Adverse event [Unknown]
